FAERS Safety Report 22220824 (Version 1)
Quarter: 2023Q2

REPORT INFORMATION
  Report Type: Spontaneous
  Country: FR (occurrence: FR)
  Receive Date: 20230418
  Receipt Date: 20230418
  Transmission Date: 20230721
  Serious: Yes (Other)
  Sender: FDA-Public Use
  Company Number: FR-AFSSAPS-AVCN2023000165

PATIENT
  Age: 25 Year
  Sex: Male

DRUGS (2)
  1. ACETAMINOPHEN [Suspect]
     Active Substance: ACETAMINOPHEN
     Indication: Product used for unknown indication
     Dosage: CODEINE PARACETAMOL 500/30 MG: 1 TO 2 TABLETS IN THE EVENING
     Route: 048
  2. CODEINE [Suspect]
     Active Substance: CODEINE
     Indication: Product used for unknown indication
     Dosage: CODEINE PARACETAMOL 500/30 MG: 1 TO 2 TABLETS IN THE EVENING
     Route: 048

REACTIONS (2)
  - Drug abuse [Unknown]
  - Product use in unapproved indication [Unknown]
